FAERS Safety Report 16076911 (Version 1)
Quarter: 2019Q1

REPORT INFORMATION
  Report Type: Spontaneous
  Country: US (occurrence: US)
  Receive Date: 20190214
  Receipt Date: 20190214
  Transmission Date: 20190418
  Serious: Yes (Death)
  Sender: FDA-Public Use
  Company Number: None

PATIENT
  Age: 76 Year
  Sex: Male

DRUGS (6)
  1. BENZONATAT [Concomitant]
  2. PREDNISONE. [Concomitant]
     Active Substance: PREDNISONE
  3. ATORVAST [Concomitant]
  4. ESBRIET [Suspect]
     Active Substance: PIRFENIDONE
     Indication: FACIAL PARALYSIS
     Route: 048
     Dates: start: 20170920, end: 201902
  5. LYRICA [Concomitant]
     Active Substance: PREGABALIN
  6. METOPROLOL TARTRATE. [Concomitant]
     Active Substance: METOPROLOL TARTRATE

REACTIONS (1)
  - Death [None]

NARRATIVE: CASE EVENT DATE: 2019
